FAERS Safety Report 26065955 (Version 2)
Quarter: 2025Q4

REPORT INFORMATION
  Report Type: Report from Study
  Country: US (occurrence: US)
  Receive Date: 20251119
  Receipt Date: 20251203
  Transmission Date: 20260117
  Serious: No
  Sender: MALLINCKRODT
  Company Number: US-MALLINCKRODT-MNK202507247

PATIENT
  Age: 72 Year
  Sex: Female

DRUGS (3)
  1. CORTICOTROPIN [Suspect]
     Active Substance: CORTICOTROPIN
     Indication: Sympathetic ophthalmia
     Route: 058
  2. ARTIFICIAL TEAR [HYPROMELLOSE] [Concomitant]
     Dosage: UNKNOWN
  3. KETOROLAC TROMETHAMINE [Concomitant]
     Active Substance: KETOROLAC TROMETHAMINE
     Dosage: UNKNWON

REACTIONS (2)
  - Abdominal pain upper [Unknown]
  - Headache [Unknown]
